FAERS Safety Report 5877481-X (Version None)
Quarter: 2008Q3

REPORT INFORMATION
  Report Type: 
  Country: None (occurrence: None)
  Receive Date: 20080909
  Receipt Date: 20080903
  Transmission Date: 20090109
  Serious: Yes (Hospitalization)
  Sender: FDA-Public Use
  Company Number: 2008SP011632

PATIENT
  Age: 58 Year
  Sex: Female

DRUGS (2)
  1. RIBAVIRIN [Suspect]
     Indication: HEPATITIS C
     Dosage: ;PO
     Route: 048
     Dates: start: 20040101, end: 20040101
  2. PEGASYS [Suspect]
     Indication: HEPATITIS C
     Dates: start: 20040101, end: 20040101

REACTIONS (17)
  - ARTHRALGIA [None]
  - BODY TEMPERATURE INCREASED [None]
  - DEPRESSION [None]
  - DISTURBANCE IN ATTENTION [None]
  - DRUG INEFFECTIVE [None]
  - FALL [None]
  - HALLUCINATION [None]
  - MEMORY IMPAIRMENT [None]
  - MYALGIA [None]
  - OXYGEN SATURATION DECREASED [None]
  - PAIN [None]
  - PSYCHOTIC DISORDER [None]
  - SKIN ODOUR ABNORMAL [None]
  - SOMNAMBULISM [None]
  - SUICIDAL IDEATION [None]
  - SUICIDE ATTEMPT [None]
  - VIRAL LOAD INCREASED [None]
